FAERS Safety Report 18819841 (Version 4)
Quarter: 2021Q4

REPORT INFORMATION
  Report Type: Report from Study
  Country: IL (occurrence: IL)
  Receive Date: 20210202
  Receipt Date: 20211227
  Transmission Date: 20220304
  Serious: Yes (Hospitalization)
  Sender: FDA-Public Use
  Company Number: IL-ABBVIE-21K-082-3754811-00

PATIENT
  Age: 67 Year
  Sex: Male

DRUGS (2)
  1. CARBIDOPA\LEVODOPA [Suspect]
     Active Substance: CARBIDOPA\LEVODOPA
     Indication: Parkinson^s disease
     Route: 050
     Dates: start: 20140430
  2. CARBIDOPA\LEVODOPA [Suspect]
     Active Substance: CARBIDOPA\LEVODOPA
     Dosage: MD- 14.0; CD- (ML/H) 4.4; ED(ML)- 1.6.?DOSE INCREASED
     Route: 050

REACTIONS (10)
  - Gastrointestinal haemorrhage [Unknown]
  - Abdominal pain [Unknown]
  - Faeces discoloured [Unknown]
  - On and off phenomenon [Unknown]
  - Mobility decreased [Unknown]
  - Gait disturbance [Unknown]
  - Device dislocation [Recovered/Resolved]
  - Small intestine ulcer [Unknown]
  - Therapeutic product effect decreased [Unknown]
  - Freezing phenomenon [Unknown]

NARRATIVE: CASE EVENT DATE: 20201101
